FAERS Safety Report 19149765 (Version 2)
Quarter: 2021Q2

REPORT INFORMATION
  Report Type: Other
  Country: JP (occurrence: JP)
  Receive Date: 20210416
  Receipt Date: 20210612
  Transmission Date: 20210717
  Serious: Yes (Hospitalization)
  Sender: FDA-Public Use
  Company Number: JP-ROCHE-2809796

PATIENT
  Age: 51 Year
  Sex: Male

DRUGS (4)
  1. CPT?11 [Concomitant]
     Active Substance: IRINOTECAN HYDROCHLORIDE
     Dosage: 2 CYCLES
  2. INSULIN [Concomitant]
     Active Substance: INSULIN NOS
     Indication: TYPE 2 DIABETES MELLITUS
     Dosage: 4 INJECTIONS PER DAY (0.5 UNITS/KG/DAY)
  3. ATEZOLIZUMAB. [Suspect]
     Active Substance: ATEZOLIZUMAB
     Indication: NON-SMALL CELL LUNG CANCER
     Route: 065
  4. TS?1 [Concomitant]
     Active Substance: GIMERACIL\OTERACIL\TEGAFUR
     Dosage: 5 CYCLES

REACTIONS (2)
  - Febrile infection [Unknown]
  - Diabetic ketoacidosis [Recovered/Resolved]
